FAERS Safety Report 5279897-1 (Version None)
Quarter: 2007Q1

REPORT INFORMATION
  Report Type: 
  Country: None (occurrence: None)
  Receive Date: 20070322
  Receipt Date: 20070313
  Transmission Date: 20070707
  Serious: Yes (Hospitalization)
  Sender: FDA-Public Use
  Company Number: 2007-01176

PATIENT
  Age: 74 Year
  Sex: Female

DRUGS (2)
  1. METFORMIN HCL [Suspect]
     Indication: DIABETES MELLITUS
     Dosage: 750 MG, Q8H, ORAL
     Route: 048
  2. GLYBURIDE [Concomitant]

REACTIONS (6)
  - DRUG TOXICITY [None]
  - HYPERLACTACIDAEMIA [None]
  - HYPOKALAEMIA [None]
  - PANCREATITIS ACUTE [None]
  - RECTAL ADENOMA [None]
  - RENAL FAILURE ACUTE [None]
